FAERS Safety Report 24613291 (Version 2)
Quarter: 2024Q4

REPORT INFORMATION
  Report Type: Spontaneous
  Country: AU (occurrence: AU)
  Receive Date: 20241113
  Receipt Date: 20241119
  Transmission Date: 20250115
  Serious: Yes (Hospitalization, Disabling, Other)
  Sender: PFIZER
  Company Number: AU-MLMSERVICE-20241104-PI250113-00218-1

PATIENT
  Age: 43 Year
  Sex: Female

DRUGS (2)
  1. METHOTREXATE SODIUM [Suspect]
     Active Substance: METHOTREXATE SODIUM
     Indication: Rheumatoid arthritis
     Dosage: 20 MG, WEEKLY
  2. FOLIC ACID [Concomitant]
     Active Substance: FOLIC ACID
     Dosage: UNK

REACTIONS (5)
  - Lymphoproliferative disorder [Recovering/Resolving]
  - Monoclonal B-cell lymphocytosis [Recovering/Resolving]
  - Paraneoplastic encephalomyelitis [Recovering/Resolving]
  - Hand fracture [Unknown]
  - Fall [Recovered/Resolved]
